FAERS Safety Report 7443282-4 (Version None)
Quarter: 2011Q2

REPORT INFORMATION
  Report Type: 
  Country: None (occurrence: None)
  Receive Date: 20110428
  Receipt Date: 20110412
  Transmission Date: 20111010
  Serious: No
  Sender: FDA-Public Use
  Company Number: US-B.I. PHARMACEUTICALS,INC./RIDGEFIELD-2011-BP-10608BP

PATIENT
  Sex: Female

DRUGS (9)
  1. GLUCOTROL [Concomitant]
     Indication: DIABETES MELLITUS
  2. FLEXERIL [Concomitant]
     Indication: HIDRADENITIS
     Route: 048
  3. ZIMBACOL [Concomitant]
     Indication: HYPERLIPIDAEMIA
     Route: 048
  4. PRAVACHOL [Concomitant]
     Indication: HYPERLIPIDAEMIA
     Route: 048
  5. NAPROXEN [Concomitant]
     Indication: HIDRADENITIS
     Dosage: 500 MG
     Route: 048
  6. GLUCOPHAGE [Concomitant]
     Indication: DIABETES MELLITUS
     Dosage: 100 MG
     Route: 048
  7. ZESTRIL [Concomitant]
     Indication: HYPERTENSION
     Dosage: 20 MG
     Route: 048
  8. SPIRIVA [Suspect]
     Dosage: 18 MCG
     Route: 055
     Dates: start: 20100601, end: 20110401
  9. VENTOLIN [Concomitant]
     Indication: ASTHMA
     Dosage: 25 MG

REACTIONS (1)
  - MICTURITION DISORDER [None]
